FAERS Safety Report 16563981 (Version 1)
Quarter: 2019Q3

REPORT INFORMATION
  Report Type: Report from Study
  Country: None (occurrence: CA)
  Receive Date: 20190712
  Receipt Date: 20190712
  Transmission Date: 20191004
  Serious: Yes (Other)
  Sender: FDA-Public Use
  Company Number: CA-ABBVIE-19K-028-2849087-00

PATIENT
  Age: 33 Year
  Sex: Male

DRUGS (1)
  1. HUMIRA [Suspect]
     Active Substance: ADALIMUMAB
     Indication: CROHN^S DISEASE
     Route: 058
     Dates: start: 20111102

REACTIONS (7)
  - Defaecation urgency [Not Recovered/Not Resolved]
  - Anal fistula [Unknown]
  - Back pain [Recovered/Resolved]
  - Crohn^s disease [Unknown]
  - Weight increased [Unknown]
  - Constipation [Unknown]
  - Drug level abnormal [Unknown]

NARRATIVE: CASE EVENT DATE: 201810
